FAERS Safety Report 7626492 (Version 2)
Quarter: 2017Q3

REPORT INFORMATION
  Report Type: Spontaneous
  Country: US (occurrence: US)
  Receive Date: 20101013
  Receipt Date: 20170928
  Transmission Date: 20171128
  Serious: No
  Sender: FDA-Public Use
  Company Number: US-ASTRAZENECA-2009SE09582

PATIENT
  Age: 23854 Day
  Sex: Female
  Weight: 70.3 kg

DRUGS (25)
  1. SPIRIVA [Concomitant]
     Active Substance: TIOTROPIUM BROMIDE MONOHYDRATE
     Route: 048
  2. XOPENEX [Concomitant]
     Active Substance: LEVALBUTEROL HYDROCHLORIDE
     Dosage: 3 ML ( 0.63 RNG ) THREE TIMES A DAY
     Route: 055
  3. VERAMYST [Concomitant]
     Active Substance: FLUTICASONE FUROATE
     Dosage: DAILY
     Route: 045
  4. ALBUTEROL. [Concomitant]
     Active Substance: ALBUTEROL
     Dosage: 2 PUFF(S) EVERY FOUR HOURS
     Route: 055
  5. SINGULAIR [Concomitant]
     Active Substance: MONTELUKAST SODIUM
     Dosage: 1 TABLET EVERY AFTERNOON OR EVENING
     Route: 048
  6. ALBUTEROL. [Concomitant]
     Active Substance: ALBUTEROL
     Dosage: 3 ML ( 2.5 MG ),
     Route: 055
  7. FISH OIL [Concomitant]
     Active Substance: FISH OIL
     Route: 048
  8. VIACTLV SOFT CALCIUM [Concomitant]
  9. GARLIC. [Concomitant]
     Active Substance: GARLIC
  10. MAGNESIUM CITRATE. [Concomitant]
     Active Substance: MAGNESIUM CITRATE
     Dosage: ONCE, ML
     Route: 048
  11. SYMBICORT [Suspect]
     Active Substance: BUDESONIDE\FORMOTEROL FUMARATE DIHYDRATE
     Indication: CHRONIC OBSTRUCTIVE PULMONARY DISEASE
     Dosage: 80/4.5; 2 PUFFS TWO TIMES A DAY
     Route: 055
     Dates: start: 20090811
  12. METOPROLOL TARTRATE. [Concomitant]
     Active Substance: METOPROLOL TARTRATE
     Route: 048
  13. PRAVASTATIN. [Concomitant]
     Active Substance: PRAVASTATIN
     Dosage: 80 MG
     Route: 048
  14. VENTOLIN HFA [Concomitant]
     Active Substance: ALBUTEROL SULFATE
     Indication: WHEEZING
     Dosage: 2 PUFFS 4 TIMES A DAY
     Route: 055
  15. ZYRTEC [Concomitant]
     Active Substance: CETIRIZINE HYDROCHLORIDE
     Dosage: OTC
  16. DALIRESP [Concomitant]
     Active Substance: ROFLUMILAST
     Route: 048
  17. SYMBICORT [Suspect]
     Active Substance: BUDESONIDE\FORMOTEROL FUMARATE DIHYDRATE
     Indication: CHRONIC OBSTRUCTIVE PULMONARY DISEASE
     Dosage: 160/4.5 2 PUFFS TWO TIMES A DAY
     Route: 055
  18. ZYRTEC [Concomitant]
     Active Substance: CETIRIZINE HYDROCHLORIDE
     Route: 048
  19. GLUCOSAMINE AND CHONDROITIN WITH MSM [Concomitant]
     Dosage: THREE TIMES A DAY
     Route: 048
  20. ROBITUSSIN D [Concomitant]
     Route: 048
  21. LISINOPRIL. [Concomitant]
     Active Substance: LISINOPRIL
  22. PROVENTIL HFA [Concomitant]
     Active Substance: ALBUTEROL SULFATE
  23. VENTOLIN HFA [Concomitant]
     Active Substance: ALBUTEROL SULFATE
     Indication: WHEEZING
     Dosage: 2 PUFFS AS REQUIRED
     Route: 055
  24. LIPITOR [Concomitant]
     Active Substance: ATORVASTATIN CALCIUM
  25. ALENDRONATE [Concomitant]
     Active Substance: ALENDRONATE SODIUM
     Dosage: WEEKLY

REACTIONS (6)
  - Device failure [Unknown]
  - Obesity [Unknown]
  - Dyspnoea [Unknown]
  - Loss of personal independence in daily activities [Unknown]
  - Fatigue [Unknown]
  - Pulmonary mass [Unknown]

NARRATIVE: CASE EVENT DATE: 20090822
